FAERS Safety Report 9205707 (Version 7)
Quarter: 2014Q1

REPORT INFORMATION
  Report Type: Report from Study
  Country: JP (occurrence: JP)
  Receive Date: 20130403
  Receipt Date: 20140102
  Transmission Date: 20141002
  Serious: Yes (Death)
  Sender: FDA-Public Use
  Company Number: JP-PFIZER INC-2013100764

PATIENT
  Age: 65 Year
  Sex: Female
  Weight: 44.6 kg

DRUGS (4)
  1. XALKORI [Suspect]
     Indication: NON-SMALL CELL LUNG CANCER
     Dosage: 250 MG TWICE DAILY
     Route: 048
     Dates: start: 20130215, end: 20130311
  2. RINDERON [Concomitant]
     Dosage: 4 MG, UNK
     Dates: start: 20130205, end: 20130315
  3. MORPHINE HYDROCHLORIDE [Concomitant]
     Dosage: 40 MG, UNK
     Dates: start: 20130208, end: 20130228
  4. TWINPAL [Concomitant]
     Dosage: 1000 ML, UNK
     Dates: start: 20130130

REACTIONS (3)
  - Interstitial lung disease [Fatal]
  - Disease progression [Fatal]
  - Non-small cell lung cancer [Fatal]
